FAERS Safety Report 11583741 (Version 1)
Quarter: 2015Q3

REPORT INFORMATION
  Report Type: Spontaneous
  Country: US (occurrence: None)
  Receive Date: 20150930
  Receipt Date: 20150930
  Transmission Date: 20151125
  Serious: Yes (Hospitalization)
  Sender: FDA-Public Use
  Company Number: None

PATIENT
  Age: 74 Year
  Sex: Female
  Weight: 70.08 kg

DRUGS (23)
  1. AZELASTINE HCL SOLN [Concomitant]
  2. DESLORATADINE. [Concomitant]
     Active Substance: DESLORATADINE
  3. CLOPIDOGREL BISULFATE. [Concomitant]
     Active Substance: CLOPIDOGREL BISULFATE
  4. ASPIRIN. [Concomitant]
     Active Substance: ASPIRIN
  5. RESTASIS (CYCLOSPORINE) [Concomitant]
  6. ATORVASTATIN CALCIUM. [Concomitant]
     Active Substance: ATORVASTATIN CALCIUM
  7. OPSUMIT [Concomitant]
     Active Substance: MACITENTAN
  8. SPIRONOLACTONE. [Concomitant]
     Active Substance: SPIRONOLACTONE
  9. FUROSEMIDE. [Concomitant]
     Active Substance: FUROSEMIDE
  10. MIRALAX (POLYETHYLENE GLYCOL 3350) [Concomitant]
  11. IPRATROPIUM BROMIDE. [Concomitant]
     Active Substance: IPRATROPIUM BROMIDE
  12. WELLBUTRIN SE (IBUPROPION HCL) [Concomitant]
  13. LOTEMAX (LOTEPREDNOL ETAABONATE) [Concomitant]
  14. PREMARIN [Concomitant]
     Active Substance: ESTROGENS, CONJUGATED
  15. DOCUSATE SODIUM. [Concomitant]
     Active Substance: DOCUSATE SODIUM
  16. DOMPERIDONE [Suspect]
     Active Substance: DOMPERIDONE
     Indication: IMPAIRED GASTRIC EMPTYING
     Route: 048
     Dates: start: 201208
  17. MICARDIS (TELMASATANO [Concomitant]
  18. DOMPERIDONE [Concomitant]
     Active Substance: DOMPERIDONE
  19. PROAIR HFA 9ALBUTEROL SULFATE) [Concomitant]
  20. ADCIRCA (TADALAFIL (PAH)) [Concomitant]
  21. OXYBUTYNIN CHLORIDE. [Concomitant]
     Active Substance: OXYBUTYNIN CHLORIDE
  22. POTASSIUM CHLORIDE. [Concomitant]
     Active Substance: POTASSIUM CHLORIDE
  23. NEXIUM (ESOMEPRAZOLEMAGNESIUM) [Concomitant]

REACTIONS (1)
  - Respiratory disorder [None]
